FAERS Safety Report 6103774-7 (Version None)
Quarter: 2009Q1

REPORT INFORMATION
  Report Type: 
  Country: None (occurrence: None)
  Receive Date: 20090305
  Receipt Date: 20090302
  Transmission Date: 20090719
  Serious: Yes (Hospitalization)
  Sender: FDA-Public Use
  Company Number: AU-ASTRAZENECA-2009AP01288

PATIENT
  Age: 46 Year
  Sex: Male

DRUGS (1)
  1. CRESTOR [Suspect]
     Indication: HYPERLIPIDAEMIA
     Route: 048
     Dates: start: 20080301, end: 20090219

REACTIONS (5)
  - BACK PAIN [None]
  - DIPLOPIA [None]
  - DIZZINESS [None]
  - HEADACHE [None]
  - NECK INJURY [None]
